FAERS Safety Report 4984919-9 (Version None)
Quarter: 2006Q2

REPORT INFORMATION
  Report Type: 
  Country: None (occurrence: None)
  Receive Date: 20060426
  Receipt Date: 20060426
  Transmission Date: 20061013
  Serious: No
  Sender: FDA-Public Use
  Company Number: None

PATIENT
  Sex: Male
  Weight: 130.6359 kg

DRUGS (11)
  1. LIPITOR [Suspect]
     Indication: HYPERLIPIDAEMIA
     Dosage: 20MG - 10 MG QHS ORAL
     Route: 048
  2. NOVALIN 70/30 [Concomitant]
  3. VITAMIN B-100 [Concomitant]
  4. DILTIAZEM [Concomitant]
  5. ATACAND [Concomitant]
  6. HYDROCHLOROTHIAZIDE [Concomitant]
  7. WARFARIN SODIUM [Concomitant]
  8. NIACIN [Concomitant]
  9. AMLODIPINE [Concomitant]
  10. METFORMIN [Concomitant]
  11. LISINOPRIL [Concomitant]

REACTIONS (2)
  - MUSCLE SPASMS [None]
  - PAIN IN EXTREMITY [None]
